FAERS Safety Report 25655113 (Version 1)
Quarter: 2025Q3

REPORT INFORMATION
  Report Type: Spontaneous
  Country: CA (occurrence: CA)
  Receive Date: 20250807
  Receipt Date: 20250807
  Transmission Date: 20251021
  Serious: Yes (Hospitalization)
  Sender: PFIZER
  Company Number: CA-PFIZER INC-202500158544

PATIENT
  Age: 72 Year
  Sex: Female
  Weight: 41 kg

DRUGS (18)
  1. FRAGMIN [Suspect]
     Active Substance: DALTEPARIN SODIUM
     Indication: Thrombosis prophylaxis
     Dosage: 5000 IU, 1X/DAY (1 EVERY 1 DAYS)
  2. DELTASONE [Suspect]
     Active Substance: PREDNISONE
     Route: 048
  3. ASPIRIN [Suspect]
     Active Substance: ASPIRIN
     Indication: Cardiovascular event prophylaxis
     Dosage: 80 MG, 1X/DAY (1 EVERY 1 DAYS)
  4. ACETAMINOPHEN [Concomitant]
     Active Substance: ACETAMINOPHEN
  5. AMOXICILLIN [Concomitant]
     Active Substance: AMOXICILLIN
  6. CEFTRIAXONE [Concomitant]
     Active Substance: CEFTRIAXONE
  7. DIOVOL [ALUMINIUM HYDROXIDE-MAGNESIUM CARBONATE GEL;MAGNESIUM HYDROXID [Concomitant]
  8. DOXYCYCLINE [Concomitant]
     Active Substance: DOXYCYCLINE
  9. FLUTICASONE PROPIONATE\SALMETEROL XINAFOATE [Concomitant]
     Active Substance: FLUTICASONE PROPIONATE\SALMETEROL XINAFOATE
     Route: 055
  10. IPRATROPIUM [Concomitant]
     Active Substance: IPRATROPIUM
  11. IRON [Concomitant]
     Active Substance: IRON
  12. LATANOPROST [Concomitant]
     Active Substance: LATANOPROST
  13. LORAZEPAM [Concomitant]
     Active Substance: LORAZEPAM
     Route: 065
  14. MAGNESIUM PHOSPHATE [Concomitant]
     Active Substance: MAGNESIUM PHOSPHATE, TRIBASIC, PENTAHYDRATE
  15. ONDANSETRON [Concomitant]
     Active Substance: ONDANSETRON
  16. PREDNISONE [Concomitant]
     Active Substance: PREDNISONE
  17. ALBUTEROL [Concomitant]
     Active Substance: ALBUTEROL
  18. SOLU-MEDROL [Concomitant]
     Active Substance: METHYLPREDNISOLONE SODIUM SUCCINATE

REACTIONS (2)
  - Gastric ulcer [Recovering/Resolving]
  - Upper gastrointestinal haemorrhage [Recovering/Resolving]
